FAERS Safety Report 23398121 (Version 1)
Quarter: 2024Q1

REPORT INFORMATION
  Report Type: Report from Study
  Country: US (occurrence: US)
  Receive Date: 20240112
  Receipt Date: 20240112
  Transmission Date: 20240409
  Serious: Yes (Death, Hospitalization)
  Sender: FDA-Public Use
  Company Number: US-JNJFOC-20240124448

PATIENT
  Age: 7 Year
  Sex: Male

DRUGS (1)
  1. ACETAMINOPHEN [Suspect]
     Active Substance: ACETAMINOPHEN
     Indication: Accidental exposure to product by child
     Route: 048
     Dates: start: 2007

REACTIONS (6)
  - Toxicity to various agents [Fatal]
  - Accidental exposure to product by child [Fatal]
  - Hepatic failure [Fatal]
  - Hypotension [Fatal]
  - Anuria [Fatal]
  - Medication error [Fatal]

NARRATIVE: CASE EVENT DATE: 20070101
